FAERS Safety Report 9995814 (Version 1)
Quarter: 2014Q1

REPORT INFORMATION
  Report Type: Spontaneous
  Country: GB (occurrence: GB)
  Receive Date: 20140311
  Receipt Date: 20140311
  Transmission Date: 20141002
  Serious: Yes (Other)
  Sender: FDA-Public Use
  Company Number: GB-SA-2014SA026312

PATIENT
  Age: 46 Year
  Sex: Male
  Weight: 85 kg

DRUGS (3)
  1. INDAPAMIDE [Suspect]
     Indication: PRODUCT USED FOR UNKNOWN INDICATION
     Route: 065
     Dates: start: 20131117
  2. CHLORTALIDONE [Concomitant]
     Dates: start: 20131029, end: 20140127
  3. LOSARTAN [Concomitant]
     Dates: start: 20131105

REACTIONS (1)
  - Electrocardiogram QT prolonged [Recovered/Resolved]
